FAERS Safety Report 9763335 (Version 1)
Quarter: 2013Q4

REPORT INFORMATION
  Report Type: Spontaneous
  Country: US (occurrence: US)
  Receive Date: 20131216
  Receipt Date: 20131216
  Transmission Date: 20140711
  Serious: No
  Sender: FDA-Public Use
  Company Number: US-BIOGENIDEC-2013BI104807

PATIENT
  Age: 56 Year
  Sex: Female

DRUGS (7)
  1. TECFIDERA [Suspect]
     Indication: MULTIPLE SCLEROSIS
     Route: 048
     Dates: start: 20131018
  2. RAMIPRIL [Concomitant]
  3. HUMALOG [Concomitant]
  4. TOPIRAMATE [Concomitant]
  5. TRAZADONE [Concomitant]
  6. CRESTOR [Concomitant]
  7. ASPIRIN [Concomitant]

REACTIONS (3)
  - Decreased appetite [Unknown]
  - Nausea [Unknown]
  - Vomiting [Unknown]
